FAERS Safety Report 12647322 (Version 1)
Quarter: 2016Q3

REPORT INFORMATION
  Report Type: Report from Study
  Country: BR (occurrence: BR)
  Receive Date: 20160812
  Receipt Date: 20160812
  Transmission Date: 20161109
  Serious: Yes (Death, Other)
  Sender: FDA-Public Use
  Company Number: PHHY2016BR110635

PATIENT
  Age: 86 Year
  Sex: Female
  Weight: 58 kg

DRUGS (1)
  1. EXELON PATCH [Suspect]
     Active Substance: RIVASTIGMINE
     Indication: DEMENTIA ALZHEIMER^S TYPE
     Dosage: PATCH 5 CM2
     Route: 062
     Dates: end: 20160722

REACTIONS (5)
  - Shock [Fatal]
  - Accident [Unknown]
  - Femur fracture [Unknown]
  - Anaesthetic complication [Unknown]
  - Cardiac arrest [Fatal]

NARRATIVE: CASE EVENT DATE: 20160723
